FAERS Safety Report 8510219-6 (Version None)
Quarter: 2012Q3

REPORT INFORMATION
  Report Type: 
  Country: None (occurrence: None)
  Receive Date: 20120713
  Receipt Date: 20120705
  Transmission Date: 20120928
  Serious: Yes (Hospitalization)
  Sender: FDA-Public Use
  Company Number: DE-ABBOTT-12P-062-0953730-00

PATIENT
  Sex: Female
  Weight: 50 kg

DRUGS (4)
  1. PREDNISONE TAB [Suspect]
     Indication: JUVENILE ARTHRITIS
     Dosage: 10 MG DAILY
     Dates: start: 20120201, end: 20120701
  2. NAPROXEN [Suspect]
     Indication: JUVENILE ARTHRITIS
     Dosage: 750 MG DAILY
     Route: 048
     Dates: start: 20120201, end: 20120601
  3. HUMIRA [Suspect]
     Indication: JUVENILE ARTHRITIS
     Route: 058
     Dates: start: 20120608
  4. SULFASALAZINE [Suspect]
     Indication: JUVENILE ARTHRITIS
     Dosage: 2000 MG DAILY
     Dates: start: 20120201

REACTIONS (1)
  - ANXIETY [None]
